FAERS Safety Report 6217867-7 (Version None)
Quarter: 2009Q2

REPORT INFORMATION
  Report Type: 
  Country: None (occurrence: None)
  Receive Date: 20090608
  Receipt Date: 20090525
  Transmission Date: 20091009
  Serious: Yes (Other)
  Sender: FDA-Public Use
  Company Number: IT-ROCHE-634509

PATIENT
  Age: 31 Year
  Sex: Male

DRUGS (10)
  1. MYCOPHENOLATE MOFETIL [Suspect]
     Route: 065
  2. TACROLIMUS [Suspect]
     Route: 065
  3. CYCLOSPORINE [Suspect]
     Route: 065
  4. CYCLOSPORINE [Suspect]
     Dosage: DOSE REDUCED
     Route: 065
  5. AZATHIOPRINE [Suspect]
     Route: 065
  6. METHYLPREDNISOLONE [Suspect]
     Dosage: DOSE REPORTED AS 600 MG, 3 DOSES
     Route: 065
  7. METHYLPREDNISOLONE [Suspect]
     Route: 065
  8. PREDNISONE [Suspect]
     Route: 065
  9. PREDNISONE [Suspect]
     Dosage: DOSE: 1MG/KG
     Route: 065
  10. PREDNISONE [Suspect]
     Dosage: DOSE REDUCED
     Route: 065

REACTIONS (6)
  - ACUTE GRAFT VERSUS HOST DISEASE [None]
  - ANAEMIA [None]
  - EPSTEIN-BARR VIRUS ASSOCIATED LYMPHOPROLIFERATIVE DISORDER [None]
  - INFECTION [None]
  - INTESTINAL PERFORATION [None]
  - LEUKOPENIA [None]
